FAERS Safety Report 8145363-9 (Version None)
Quarter: 2012Q1

REPORT INFORMATION
  Report Type: 
  Country: None (occurrence: None)
  Receive Date: 20120217
  Receipt Date: 20120210
  Transmission Date: 20120608
  Serious: Yes (Hospitalization)
  Sender: FDA-Public Use
  Company Number: BE-B.I. PHARMACEUTICALS,INC./RIDGEFIELD-2012-BL-00103BL

PATIENT
  Sex: Male
  Weight: 141 kg

DRUGS (1)
  1. PRADAXA [Suspect]
     Indication: ATRIAL FIBRILLATION
     Dosage: 300 MG
     Route: 048
     Dates: start: 20120102, end: 20120206

REACTIONS (3)
  - MELAENA [None]
  - ANAL HAEMORRHAGE [None]
  - ACUTE PRERENAL FAILURE [None]
